FAERS Safety Report 15125607 (Version 2)
Quarter: 2018Q3

REPORT INFORMATION
  Report Type: Spontaneous
  Country: HU (occurrence: HU)
  Receive Date: 20180710
  Receipt Date: 20180726
  Transmission Date: 20181010
  Serious: Yes (Hospitalization, Other)
  Sender: FDA-Public Use
  Company Number: PHHY2018HU042364

PATIENT
  Sex: Male

DRUGS (3)
  1. PACLITAXEL. [Suspect]
     Active Substance: PACLITAXEL
     Indication: SQUAMOUS CELL CARCINOMA
     Dosage: UNK, CYCLIC (5 CYCLE OF COMBINATION CHEMOTHERAPY)
     Route: 065
     Dates: start: 20131001, end: 20140104
  2. CISPLATIN. [Suspect]
     Active Substance: CISPLATIN
     Indication: SQUAMOUS CELL CARCINOMA
     Dosage: UNK, CYCLIC (5 CYCLE OF COMBINATION CHEMOTHERAPY)
     Route: 065
     Dates: start: 20131001, end: 20140104
  3. IPILIMUMAB [Suspect]
     Active Substance: IPILIMUMAB
     Indication: SQUAMOUS CELL CARCINOMA
     Dosage: UNK, CYCLIC (5 CYCLE OF COMBINATION CHEMOTHERAPY)
     Route: 065
     Dates: start: 20131001, end: 20140104

REACTIONS (4)
  - Polyneuropathy [Unknown]
  - Type 1 diabetes mellitus [Unknown]
  - Cerebral haemorrhage [Unknown]
  - Neoplasm progression [Unknown]

NARRATIVE: CASE EVENT DATE: 201608
